FAERS Safety Report 15281609 (Version 1)
Quarter: 2018Q3

REPORT INFORMATION
  Report Type: Report from Study
  Country: US (occurrence: US)
  Receive Date: 20180815
  Receipt Date: 20180815
  Transmission Date: 20181010
  Serious: Yes (Other)
  Sender: FDA-Public Use
  Company Number: US-ADAMAS PHARMA, LLC-2018ADA01716

PATIENT
  Age: 82 Year
  Sex: Female
  Weight: 54.88 kg

DRUGS (18)
  1. COQ10 [Concomitant]
     Active Substance: UBIDECARENONE
  2. ALOE VERA POWDER [Concomitant]
  3. FISH OIL [Concomitant]
     Active Substance: FISH OIL
  4. CITALOPRAM [Concomitant]
     Active Substance: CITALOPRAM HYDROBROMIDE
  5. OMEPRAZOLE. [Concomitant]
     Active Substance: OMEPRAZOLE
  6. GOCOVRI [Suspect]
     Active Substance: AMANTADINE
     Dosage: 274 MG, 1X/DAY AT BEDTIME
     Route: 048
     Dates: start: 2018, end: 20180729
  7. CARBIDOPA/LEVODOPA [Concomitant]
     Active Substance: CARBIDOPA\LEVODOPA
  8. GABAPENTIN. [Concomitant]
     Active Substance: GABAPENTIN
  9. GLUCOSAMINE [Concomitant]
     Active Substance: GLUCOSAMINE
  10. ZANTAC [Concomitant]
     Active Substance: RANITIDINE HYDROCHLORIDE
  11. VITAMIN B12 [Concomitant]
     Active Substance: CYANOCOBALAMIN
  12. GOCOVRI [Suspect]
     Active Substance: AMANTADINE
     Indication: DYSKINESIA
     Dosage: 137 MG, 1X/DAY AT BEDTIME
     Route: 048
     Dates: start: 20180502, end: 2018
  13. LOSARTAN POTASSIUM. [Concomitant]
     Active Substance: LOSARTAN POTASSIUM
  14. POTASSIUM IODIDE. [Concomitant]
     Active Substance: POTASSIUM IODIDE
  15. SIMVASTATIN. [Concomitant]
     Active Substance: SIMVASTATIN
  16. GOCOVRI [Suspect]
     Active Substance: AMANTADINE
     Dosage: 137 MG, 1X/DAY AT BEDTIME
     Route: 048
     Dates: start: 20180730
  17. BIOTIN [Concomitant]
     Active Substance: BIOTIN
  18. OXYBUTYNIN ER [Concomitant]
     Active Substance: OXYBUTYNIN

REACTIONS (9)
  - Scapula fracture [Unknown]
  - Weight decreased [Not Recovered/Not Resolved]
  - Decreased appetite [Recovering/Resolving]
  - Contusion [Unknown]
  - Gait inability [Not Recovered/Not Resolved]
  - Hallucination, visual [Unknown]
  - Orthostatic hypotension [Unknown]
  - Antibiotic therapy [Unknown]
  - Fall [Not Recovered/Not Resolved]

NARRATIVE: CASE EVENT DATE: 2018
